FAERS Safety Report 7057066-2 (Version None)
Quarter: 2010Q4

REPORT INFORMATION
  Report Type: 
  Country: None (occurrence: None)
  Receive Date: 20101021
  Receipt Date: 20101021
  Transmission Date: 20110411
  Serious: No
  Sender: FDA-Public Use
  Company Number: None

PATIENT

DRUGS (1)
  1. CVSS NIGHTTIME COLD/FLU RELIEF CHERRY FLAVOR, OTC DRUG. [Suspect]
     Dates: start: 20101014, end: 20101014

REACTIONS (3)
  - MALAISE [None]
  - PRODUCT COLOUR ISSUE [None]
  - PRODUCT ODOUR ABNORMAL [None]
